FAERS Safety Report 4451582-5 (Version None)
Quarter: 2004Q3

REPORT INFORMATION
  Report Type: 
  Country: None (occurrence: None)
  Receive Date: 20040915
  Receipt Date: 20040908
  Transmission Date: 20050211
  Serious: Yes (Hospitalization)
  Sender: FDA-Public Use
  Company Number: KII-1999-0007462

PATIENT
  Sex: Female

DRUGS (2)
  1. OXYCONTIN [Suspect]
     Indication: PAIN
  2. DURAGESIC [Suspect]
     Indication: PAIN

REACTIONS (1)
  - INADEQUATE ANALGESIA [None]
